FAERS Safety Report 4449348-5 (Version None)
Quarter: 2004Q3

REPORT INFORMATION
  Report Type: 
  Country: None (occurrence: None)
  Receive Date: 20040913
  Receipt Date: 20040824
  Transmission Date: 20050211
  Serious: Yes (Other)
  Sender: FDA-Public Use
  Company Number: 2004230179US

PATIENT
  Sex: Male
  Weight: 62.1 kg

DRUGS (4)
  1. GLYNASE [Suspect]
     Indication: HYPERGLYCAEMIA
     Dosage: SEE IMAGE
     Dates: end: 20030101
  2. GLYNASE [Suspect]
     Indication: HYPERGLYCAEMIA
     Dosage: SEE IMAGE
     Dates: start: 20030901
  3. LIPITOR [Suspect]
     Indication: HIGH DENSITY LIPOPROTEIN DECREASED
     Dosage: 10 MG, QD
     Dates: start: 20010101, end: 20030101
  4. CENTRUM (VITAMIN NOS) [Concomitant]

REACTIONS (7)
  - CORONARY ARTERY OCCLUSION [None]
  - DRUG EFFECT DECREASED [None]
  - HYPERGLYCAEMIA [None]
  - LYMPHOMA [None]
  - NECK PAIN [None]
  - NODULE [None]
  - RASH [None]
